FAERS Safety Report 9155165 (Version 8)
Quarter: 2013Q3

REPORT INFORMATION
  Report Type: Spontaneous
  Country: US (occurrence: US)
  Receive Date: 20130311
  Receipt Date: 20130801
  Transmission Date: 20140515
  Serious: Yes (Hospitalization, Other)
  Sender: FDA-Public Use
  Company Number: US-PFIZER INC-2013080433

PATIENT
  Age: 68 Year
  Sex: Male
  Weight: 81.63 kg

DRUGS (14)
  1. SUTENT [Suspect]
     Indication: METASTATIC RENAL CELL CARCINOMA
     Dosage: 50 MG, Q DAY, FOR 4 WEEKS ON AND 2 WEEKS OFF
     Route: 048
     Dates: start: 20130222, end: 20130304
  2. SUTENT [Suspect]
     Indication: RENAL CELL CARCINOMA
     Dosage: 25 MG, ONCE A DAY, FOR 4 WEEKS ON AND 2 WEEKS OFF
     Route: 048
     Dates: start: 20130311
  3. SUTENT [Suspect]
     Indication: RENAL CANCER
     Dosage: 50 MG, 1X/DAY
     Dates: start: 20130219
  4. ATORVASTATIN CALCIUM [Concomitant]
     Indication: BLOOD CHOLESTEROL INCREASED
     Dosage: 20 MG, 1X/DAY
  5. PAROXETINE [Concomitant]
     Indication: ANXIETY
     Dosage: 20 MG, 1X/DAY
  6. RA COL-RITE [Concomitant]
     Indication: FAECES HARD
     Dosage: 100 MG, 4X/DAY
  7. NASONEX [Concomitant]
     Indication: SINUS CONGESTION
     Dosage: 2 DF (2 NASAL SPRAYS) DAILY
     Route: 045
  8. METOPROLOL [Concomitant]
     Indication: HYPERTENSION
     Dosage: 50 MG, 2X/DAY
  9. LORATADINE [Concomitant]
     Dosage: 10 MG, 1X/DAY
  10. HYZAAR [Concomitant]
     Dosage: HYDROCHLOROTHIAZIDE (100), LOSARTAN POTASSIUM (25), 1X/DAY
  11. AMLODIPINE [Concomitant]
  12. METFORMIN [Concomitant]
  13. ASPIRIN [Concomitant]
  14. PAXIL [Concomitant]
     Dosage: 40 MG, 1X/DAY

REACTIONS (10)
  - Hypertension [Recovered/Resolved]
  - Confusional state [Recovered/Resolved]
  - Disease progression [Unknown]
  - Metastatic renal cell carcinoma [Unknown]
  - Fatigue [Recovering/Resolving]
  - Rash [Recovering/Resolving]
  - Mouth ulceration [Unknown]
  - Vision blurred [Recovered/Resolved]
  - Dehydration [Recovered/Resolved]
  - Insomnia [Recovered/Resolved]
